FAERS Safety Report 17849879 (Version 1)
Quarter: 2020Q2

REPORT INFORMATION
  Report Type: Spontaneous
  Country: GB (occurrence: GB)
  Receive Date: 20200602
  Receipt Date: 20200602
  Transmission Date: 20200714
  Serious: Yes (Death, Hospitalization, Other)
  Sender: FDA-Public Use
  Company Number: GB-ACCORD-180934

PATIENT
  Age: 54 Year
  Sex: Female
  Weight: 74 kg

DRUGS (33)
  1. AVIBACTAM [Interacting]
     Active Substance: AVIBACTAM
     Indication: PRODUCT USED FOR UNKNOWN INDICATION
     Dates: start: 20200131
  2. MORPHINE [Concomitant]
     Active Substance: MORPHINE
  3. LEVOMEPROMAZINE [Concomitant]
     Active Substance: LEVOMEPROMAZINE
  4. PREDNISOLONE. [Concomitant]
     Active Substance: PREDNISOLONE
  5. CEFTAZIDIME/CEFTAZIDIME PENTAHYDRATE [Concomitant]
     Active Substance: CEFTAZIDIME
  6. PARACETAMOL [Concomitant]
     Active Substance: ACETAMINOPHEN
  7. ONDANSETRON [Concomitant]
     Active Substance: ONDANSETRON
  8. RAMIPRIL. [Concomitant]
     Active Substance: RAMIPRIL
  9. AVIBACTAM [Interacting]
     Active Substance: AVIBACTAM
     Indication: PRODUCT USED FOR UNKNOWN INDICATION
  10. MEROPENEM. [Interacting]
     Active Substance: MEROPENEM
     Indication: PRODUCT USED FOR UNKNOWN INDICATION
     Dates: start: 20200131
  11. AVIBACTAM [Concomitant]
     Active Substance: AVIBACTAM
  12. ACCORD-UK CO-TRIMOXAZOLE [Concomitant]
     Active Substance: SULFAMETHOXAZOLE\TRIMETHOPRIM
  13. VALGANCICLOVIR/VALGANCICLOVIR HYDROCHLORIDE [Concomitant]
     Active Substance: VALGANCICLOVIR
  14. RANITIDINE. [Concomitant]
     Active Substance: RANITIDINE
  15. AZITHROMYCIN ANHYDROUS. [Interacting]
     Active Substance: AZITHROMYCIN ANHYDROUS
     Indication: PRODUCT USED FOR UNKNOWN INDICATION
     Route: 042
     Dates: start: 20200130
  16. CETIRIZINE [Concomitant]
     Active Substance: CETIRIZINE HYDROCHLORIDE
     Dosage: EACH MORNING.
  17. AZITHROMYCIN ANHYDROUS. [Interacting]
     Active Substance: AZITHROMYCIN ANHYDROUS
     Indication: PRODUCT USED FOR UNKNOWN INDICATION
     Route: 048
     Dates: start: 20200130
  18. DOSULEPIN HYDROCHLORIDE [Concomitant]
     Active Substance: DOTHIEPIN HYDROCHLORIDE
     Indication: DEPRESSION
     Dosage: REDUCED TO 75MG OD ON ADMISSION
  19. ADOPORT [Concomitant]
     Active Substance: TACROLIMUS
  20. LORAZEPAM. [Concomitant]
     Active Substance: LORAZEPAM
  21. TINZAPARIN [Concomitant]
     Active Substance: TINZAPARIN
  22. PRAVASTATIN. [Concomitant]
     Active Substance: PRAVASTATIN
     Dosage: EACH NIGHT, HELD (PANCREATITIS
  23. OMEPRAZOLE. [Concomitant]
     Active Substance: OMEPRAZOLE
  24. CHLORPHENAMINE/CHLORPHENAMINE MALEATE/CHLORPHENAMINE RESINATE/CHLORPHENAMINE TANNATE [Concomitant]
     Active Substance: CHLORPHENIRAMINE
  25. CALCICHEW D3 [Concomitant]
     Active Substance: CALCIUM\CHOLECALCIFEROL
     Dosage: TBD
  26. PREDNISONE. [Concomitant]
     Active Substance: PREDNISONE
     Dosage: REDUCED TO 10MG OM ON ADMISSION
  27. CEFTAZIDIME/CEFTAZIDIME PENTAHYDRATE [Interacting]
     Active Substance: CEFTAZIDIME
     Indication: PRODUCT USED FOR UNKNOWN INDICATION
  28. TIGECYCLINE. [Suspect]
     Active Substance: TIGECYCLINE
     Indication: LUNG ABSCESS
     Route: 042
     Dates: start: 20200125, end: 20200205
  29. CEFTAZIDIME/CEFTAZIDIME PENTAHYDRATE [Interacting]
     Active Substance: CEFTAZIDIME
     Indication: PRODUCT USED FOR UNKNOWN INDICATION
     Dates: start: 20200131
  30. GABAPENTIN. [Concomitant]
     Active Substance: GABAPENTIN
  31. NYSTATIN. [Concomitant]
     Active Substance: NYSTATIN
  32. TIGECYCLINE. [Interacting]
     Active Substance: TIGECYCLINE
     Indication: MYCOBACTERIAL INFECTION
     Route: 042
     Dates: start: 20200128, end: 20200205
  33. MEROPENEM. [Interacting]
     Active Substance: MEROPENEM
     Indication: PRODUCT USED FOR UNKNOWN INDICATION

REACTIONS (7)
  - Abdominal pain upper [Not Recovered/Not Resolved]
  - Cardiac arrest [Not Recovered/Not Resolved]
  - Pancreatitis acute [Fatal]
  - Nausea [Not Recovered/Not Resolved]
  - Drug interaction [Unknown]
  - Abdominal pain [Not Recovered/Not Resolved]
  - Pulseless electrical activity [Not Recovered/Not Resolved]

NARRATIVE: CASE EVENT DATE: 20200205
